FAERS Safety Report 10149940 (Version 1)
Quarter: 2014Q2

REPORT INFORMATION
  Report Type: Spontaneous
  Country: GB (occurrence: GB)
  Receive Date: 20140502
  Receipt Date: 20140502
  Transmission Date: 20141212
  Serious: Yes (Other)
  Sender: FDA-Public Use
  Company Number: GB-ACTAVIS-2014-08526

PATIENT
  Age: 15 Year
  Sex: Female

DRUGS (2)
  1. FLUOXETINE (UNKNOWN) [Suspect]
     Indication: PRODUCT USED FOR UNKNOWN INDICATION
     Dosage: 20 MG, UNK
     Route: 048
     Dates: end: 201402
  2. MELATONIN [Concomitant]
     Indication: PRODUCT USED FOR UNKNOWN INDICATION
     Dosage: UNK
     Route: 065

REACTIONS (5)
  - Mood swings [Recovering/Resolving]
  - Crying [Recovering/Resolving]
  - Hyperventilation [Recovering/Resolving]
  - Anger [Recovering/Resolving]
  - Withdrawal syndrome [Recovering/Resolving]
